FAERS Safety Report 6150932-1 (Version None)
Quarter: 2009Q2

REPORT INFORMATION
  Report Type: 
  Country: None (occurrence: None)
  Receive Date: 20090408
  Receipt Date: 20090324
  Transmission Date: 20091009
  Serious: Yes (Hospitalization)
  Sender: FDA-Public Use
  Company Number: 2009S1005244

PATIENT
  Age: 31 Year
  Sex: Male

DRUGS (1)
  1. RISPERIDONE [Suspect]
     Indication: DRUG USE FOR UNKNOWN INDICATION
     Dosage: 3 MG;ORAL
     Route: 048

REACTIONS (3)
  - ALCOHOL USE [None]
  - PARANOIA [None]
  - TREATMENT NONCOMPLIANCE [None]
